FAERS Safety Report 24586789 (Version 1)
Quarter: 2024Q4

REPORT INFORMATION
  Report Type: Spontaneous
  Country: CN (occurrence: CN)
  Receive Date: 20241107
  Receipt Date: 20241107
  Transmission Date: 20250115
  Serious: Yes (Hospitalization)
  Sender: GLAXOSMITHKLINE
  Company Number: CN-GSK-CN2024GSK133402

PATIENT

DRUGS (1)
  1. LAMOTRIGINE [Suspect]
     Active Substance: LAMOTRIGINE
     Indication: Depression
     Dosage: UNK

REACTIONS (4)
  - Skin hyperpigmentation [Recovered/Resolved]
  - Rash maculo-papular [Recovered/Resolved]
  - Adverse reaction [Recovered/Resolved]
  - Pruritus [Recovered/Resolved]
